FAERS Safety Report 19623521 (Version 1)
Quarter: 2021Q3

REPORT INFORMATION
  Report Type: Spontaneous
  Country: US (occurrence: US)
  Receive Date: 20210728
  Receipt Date: 20210728
  Transmission Date: 20211014
  Serious: Yes (Hospitalization)
  Sender: FDA-Public Use
  Company Number: US-MYLANLABS-2021M1046386

PATIENT
  Age: 58 Year
  Sex: Male

DRUGS (12)
  1. TRAMADOL. [Suspect]
     Active Substance: TRAMADOL
     Indication: CENTRAL PAIN SYNDROME
     Dosage: 50 MILLIGRAM, Q8H (AS NEEDED)
     Route: 065
  2. GABAPENTIN. [Suspect]
     Active Substance: GABAPENTIN
     Indication: CENTRAL PAIN SYNDROME
     Dosage: 2400 MILLIGRAM, QD (GABAPENTIN 600MG IN THE MORNING AND AFTERNOON, AND 1200MG AT NIGHT)
     Route: 065
  3. KETAMINE [Suspect]
     Active Substance: KETAMINE
     Dosage: 10 MILLIGRAM (10 MINUTES) AS NEEDED, PATIENT?CONTROLLED ANALGESIA BOLUS
     Route: 042
  4. HYDROCODONE/ACETAMINOPHEN [Suspect]
     Active Substance: ACETAMINOPHEN\HYDROCODONE
     Indication: CENTRAL PAIN SYNDROME
     Dosage: AS NEEDED
     Route: 065
  5. KETAMINE [Suspect]
     Active Substance: KETAMINE
     Dosage: 0.33 MILLIGRAM/KILOGRAM, QH
     Route: 042
  6. TIZANIDINE. [Suspect]
     Active Substance: TIZANIDINE
     Indication: CENTRAL PAIN SYNDROME
     Dosage: 4 MILLIGRAM, QD
     Route: 065
  7. KETAMINE [Suspect]
     Active Substance: KETAMINE
     Indication: CENTRAL PAIN SYNDROME
     Dosage: LOW DOSAGE
     Route: 042
  8. LIDOCAINE. [Suspect]
     Active Substance: LIDOCAINE
     Indication: CENTRAL PAIN SYNDROME
     Dosage: TID (AS NECESSARY)
     Route: 061
  9. VENLAFAXINE [Suspect]
     Active Substance: VENLAFAXINE HYDROCHLORIDE
     Indication: CENTRAL PAIN SYNDROME
     Dosage: 37.5 MILLIGRAM, BID
     Route: 065
  10. KETAMINE [Suspect]
     Active Substance: KETAMINE
     Dosage: 0.3 MILLIGRAM/KILOGRAM, QH (BASAL INFUSION)
     Route: 042
  11. KETAMINE [Suspect]
     Active Substance: KETAMINE
     Dosage: 2.1 MILLIGRAM/KILOGRAM, QH
     Route: 042
  12. QUETIAPINE. [Concomitant]
     Active Substance: QUETIAPINE
     Indication: PROPHYLAXIS
     Dosage: 25 MILLIGRAM, Q6H
     Route: 048

REACTIONS (1)
  - Drug ineffective [Unknown]
